FAERS Safety Report 10251343 (Version 1)
Quarter: 2014Q2

REPORT INFORMATION
  Report Type: Spontaneous
  Country: US (occurrence: US)
  Receive Date: 20140622
  Receipt Date: 20140622
  Transmission Date: 20141212
  Serious: No
  Sender: FDA-Public Use
  Company Number: US-009507513-1405USA004860

PATIENT
  Sex: Male

DRUGS (1)
  1. CLARITIN ORAL SOLUTION [Suspect]
     Indication: SNEEZING
     Dosage: 2 TBS, ONCE
     Route: 048

REACTIONS (2)
  - Therapeutic response decreased [Unknown]
  - Incorrect dose administered [Unknown]
